FAERS Safety Report 12698779 (Version 2)
Quarter: 2016Q3

REPORT INFORMATION
  Report Type: Report from Study
  Country: DE (occurrence: AT)
  Receive Date: 20160830
  Receipt Date: 20160926
  Transmission Date: 20161109
  Serious: Yes (Death)
  Sender: FDA-Public Use
  Company Number: DE-ACTELION-A-US2016-141513

PATIENT
  Sex: Female

DRUGS (1)
  1. VENTAVIS [Suspect]
     Active Substance: ILOPROST
     Indication: PRODUCT USED FOR UNKNOWN INDICATION
     Dosage: UNK
     Route: 055
     Dates: start: 201509, end: 20160113

REACTIONS (3)
  - Death [Fatal]
  - Cough [Unknown]
  - Drug ineffective [Unknown]

NARRATIVE: CASE EVENT DATE: 20160729
